FAERS Safety Report 8824496 (Version 1)
Quarter: 2012Q4

REPORT INFORMATION
  Report Type: 
  Country: US (occurrence: US)
  Receive Date: 20121004
  Receipt Date: 20121004
  Transmission Date: 20130627
  Serious: No
  Sender: FDA-Public Use
  Company Number: US-PFIZER INC-2012241397

PATIENT
  Age: 69 Year
  Sex: Male

DRUGS (2)
  1. SUTENT [Suspect]
     Indication: RENAL CANCER
     Dosage: 25mg daily
     Dates: start: 20110922
  2. SUTENT [Suspect]
     Indication: MALIGNANT URINARY TRACT NEOPLASM

REACTIONS (2)
  - Disease progression [Unknown]
  - Renal cancer [Unknown]
